FAERS Safety Report 8093363-X (Version None)
Quarter: 2012Q1

REPORT INFORMATION
  Report Type: 
  Country: None (occurrence: None)
  Receive Date: 20120131
  Receipt Date: 20120126
  Transmission Date: 20120608
  Serious: Yes (Other)
  Sender: FDA-Public Use
  Company Number: US-PFIZER INC-2012023028

PATIENT
  Sex: Female
  Weight: 90.703 kg

DRUGS (4)
  1. NEURONTIN [Concomitant]
     Indication: COMPLEX REGIONAL PAIN SYNDROME
     Dosage: 300 MG, AS NEEDED (2100 MG IN 24HOURS)
  2. LEXAPRO [Concomitant]
     Indication: ANXIETY
     Dosage: 15 MG, DAILY
  3. AVALIDE [Concomitant]
     Indication: HYPERTENSION
     Dosage: 300/12.5 MG, DAILY
  4. DILANTIN-125 [Suspect]
     Indication: EPILEPSY
     Dosage: 300 MG, DAILY
     Dates: start: 19890101

REACTIONS (2)
  - PLATELET FUNCTION TEST ABNORMAL [None]
  - EYE HAEMORRHAGE [None]
